FAERS Safety Report 15963820 (Version 1)
Quarter: 2019Q1

REPORT INFORMATION
  Report Type: Spontaneous
  Country: DE (occurrence: DE)
  Receive Date: 20190214
  Receipt Date: 20190214
  Transmission Date: 20190417
  Serious: Yes (Other)
  Sender: FDA-Public Use
  Company Number: DE-MYLANLABS-2019M1012741

PATIENT
  Age: 14 Year
  Sex: Female
  Weight: 48 kg

DRUGS (6)
  1. TRIMETHOPRIM SULFAMETHOXAZOLE [Concomitant]
     Active Substance: SULFAMETHOXAZOLE\TRIMETHOPRIM
     Dosage: 160 MG, 2X/DAY(TWICE WEEKLY, FOR A BODY WEIGHT OF 48 KG)
  2. VORICONAZOLE. [Suspect]
     Active Substance: VORICONAZOLE
     Indication: ANTIFUNGAL TREATMENT
     Dosage: 200 MG, 2X/DAY(TWICE WEEKLY, FOR A BODY WEIGHT OF 48 KG)
  3. CYCLOSPORINE. [Interacting]
     Active Substance: CYCLOSPORINE
     Dosage: UNK(TAPERED STARTING ON DAY +88)
  4. CYCLOSPORINE. [Interacting]
     Active Substance: CYCLOSPORINE
     Dosage: 2.8 MG/KG, DAILY(STABLE DOSE, GIVEN IN TWO EQUALLY DIVIDED DAILY DOSES)
  5. CYCLOSPORINE. [Interacting]
     Active Substance: CYCLOSPORINE
     Indication: IMMUNOSUPPRESSION
     Dosage: 3 MILLIGRAM/KILOGRAM, QD (3 MG/KG, DAILY(STARTING DOSE, 3 MG/KG BODY WEIGHT/DAY, SCHEDULED DURATION
  6. VALACICLOVIR [Concomitant]
     Active Substance: VALACYCLOVIR HYDROCHLORIDE
     Dosage: 500 MG, 2X/DAY(TWICE WEEKLY, FOR A BODY WEIGHT OF 48 KG)

REACTIONS (3)
  - Drug level decreased [Recovered/Resolved]
  - Drug interaction [Unknown]
  - Hepatotoxicity [Recovered/Resolved]
